FAERS Safety Report 4999222-0 (Version None)
Quarter: 2006Q2

REPORT INFORMATION
  Report Type: 
  Country: None (occurrence: None)
  Receive Date: 20060511
  Receipt Date: 20060410
  Transmission Date: 20061013
  Serious: Yes (Disabling, Other)
  Sender: FDA-Public Use
  Company Number: GBWYE548311APR06

PATIENT
  Sex: Female

DRUGS (7)
  1. ENBREL [Suspect]
     Indication: RHEUMATOID ARTHRITIS
     Dosage: UNKNOWN
     Route: 058
     Dates: start: 20030624, end: 20040801
  2. UNSPECIFIED ANTIHYPERTENSIVE AGENT [Concomitant]
     Dosage: UNKNOWN
  3. METHYLPREDNISOLONE ACETATE [Concomitant]
  4. METHOTREXATE [Concomitant]
     Dates: start: 19990501, end: 20040801
  5. DICLOFENAC [Concomitant]
  6. AMLODIPINE [Concomitant]
  7. LOSEC [Concomitant]

REACTIONS (3)
  - BRONCHIECTASIS [None]
  - BRONCHIOLITIS [None]
  - PNEUMONIA [None]
